FAERS Safety Report 8265825-3 (Version None)
Quarter: 2012Q2

REPORT INFORMATION
  Report Type: 
  Country: None (occurrence: None)
  Receive Date: 20120406
  Receipt Date: 20120403
  Transmission Date: 20120825
  Serious: Yes (Death, Life-Threatening, Hospitalization)
  Sender: FDA-Public Use
  Company Number: IT-BRACCO-001663

PATIENT
  Age: 37 Year
  Sex: Female

DRUGS (3)
  1. MULTIHANCE [Suspect]
     Indication: DYSAESTHESIA
     Route: 042
     Dates: start: 20120216, end: 20120216
  2. MULTIHANCE [Suspect]
     Indication: PARAESTHESIA
     Route: 042
     Dates: start: 20120216, end: 20120216
  3. MULTIHANCE [Suspect]
     Indication: NUCLEAR MAGNETIC RESONANCE IMAGING
     Route: 042
     Dates: start: 20120216, end: 20120216

REACTIONS (6)
  - LOSS OF CONSCIOUSNESS [None]
  - VENTRICULAR TACHYCARDIA [None]
  - COMA [None]
  - DYSPNOEA [None]
  - MALAISE [None]
  - CARDIAC ARREST [None]
